FAERS Safety Report 25016964 (Version 1)
Quarter: 2025Q1

REPORT INFORMATION
  Report Type: Report from Study
  Country: IN (occurrence: IN)
  Receive Date: 20250227
  Receipt Date: 20250227
  Transmission Date: 20250409
  Serious: Yes (Other)
  Sender: ROCHE
  Company Number: IN-ROCHE-10000212628

PATIENT
  Age: 43 Year
  Sex: Male
  Weight: 83.7 kg

DRUGS (1)
  1. POLIVY [Suspect]
     Active Substance: POLATUZUMAB VEDOTIN-PIIQ
     Indication: Diffuse large B-cell lymphoma
     Route: 042
     Dates: start: 20241223

REACTIONS (3)
  - Drug ineffective [Unknown]
  - Disease progression [Unknown]
  - White blood cell count decreased [Unknown]
